FAERS Safety Report 18914085 (Version 1)
Quarter: 2021Q1

REPORT INFORMATION
  Report Type: Spontaneous
  Country: US (occurrence: US)
  Receive Date: 20210218
  Receipt Date: 20210218
  Transmission Date: 20210420
  Serious: No
  Sender: FDA-Public Use
  Company Number: US-TEVA-2021-US-1878438

PATIENT
  Age: 8 Year
  Sex: Male

DRUGS (2)
  1. VITAMIN B12 [Concomitant]
     Active Substance: CYANOCOBALAMIN
     Route: 065
  2. LEUCOVORIN CALCIUM. [Suspect]
     Active Substance: LEUCOVORIN CALCIUM
     Route: 065

REACTIONS (6)
  - Inappropriate affect [Unknown]
  - Drug ineffective [Unknown]
  - Rash [Unknown]
  - Psychomotor hyperactivity [Unknown]
  - Mental disorder [Unknown]
  - Insomnia [Unknown]
